FAERS Safety Report 15038170 (Version 1)
Quarter: 2018Q2

REPORT INFORMATION
  Report Type: Spontaneous
  Country: IE (occurrence: IE)
  Receive Date: 20180620
  Receipt Date: 20180620
  Transmission Date: 20180711
  Serious: Yes (Other)
  Sender: FDA-Public Use
  Company Number: IE-ABBVIE-18P-229-2390173-00

PATIENT
  Age: 29 Year

DRUGS (4)
  1. METHOTREXATE. [Suspect]
     Active Substance: METHOTREXATE
     Indication: ACNE
     Route: 065
  2. ROACCUTANE [Suspect]
     Active Substance: ISOTRETINOIN
     Indication: ACNE
     Dosage: 0.5 MG KG-1 INITIALLY AND HAD THEIR DOSE TITRATED TO A MEAN DOSE OF 0.75 MG KG-1
     Route: 065
  3. ADALIMUMAB [Suspect]
     Active Substance: ADALIMUMAB
     Indication: ACNE
     Route: 065
  4. INFLIXIMAB [Suspect]
     Active Substance: INFLIXIMAB
     Indication: ACNE
     Route: 065

REACTIONS (3)
  - Abscess [Unknown]
  - Skin mass [Unknown]
  - Drug resistance [Unknown]
